FAERS Safety Report 10336083 (Version 1)
Quarter: 2014Q3

REPORT INFORMATION
  Report Type: Spontaneous
  Country: US (occurrence: US)
  Receive Date: 20140723
  Receipt Date: 20140723
  Transmission Date: 20150326
  Serious: No
  Sender: FDA-Public Use
  Company Number: US-UNITED THERAPEUTICS-UTC-047120

PATIENT
  Sex: Male
  Weight: 90.71 kg

DRUGS (3)
  1. REMODULIN [Suspect]
     Active Substance: TREPROSTINIL
     Dosage: 0.002 UG/KG/MIN
     Route: 058
     Dates: start: 20140331
  2. SILDENAFIL [Concomitant]
     Active Substance: SILDENAFIL
  3. VENTAVIS [Concomitant]
     Active Substance: ILOPROST

REACTIONS (5)
  - Dizziness [Unknown]
  - Decreased appetite [Unknown]
  - Pyrexia [Unknown]
  - Headache [Unknown]
  - Fatigue [Unknown]

NARRATIVE: CASE EVENT DATE: 2014
